FAERS Safety Report 6801548-2 (Version None)
Quarter: 2010Q2

REPORT INFORMATION
  Report Type: 
  Country: None (occurrence: None)
  Receive Date: 20100629
  Receipt Date: 20100616
  Transmission Date: 20101027
  Serious: Yes (Other)
  Sender: FDA-Public Use
  Company Number: BR-GENENTECH-269688

PATIENT
  Sex: Female

DRUGS (4)
  1. XOLAIR [Suspect]
     Indication: ASTHMA
     Dosage: 1 AMP, 1/MONTH
  2. BUDESONIDE [Concomitant]
     Indication: ASTHMA
  3. ALVESCO [Concomitant]
     Indication: ASTHMA
  4. CONCOMITANT DRUGS [Concomitant]
     Indication: DRUG USE FOR UNKNOWN INDICATION

REACTIONS (4)
  - DRUG EXPOSURE DURING PREGNANCY [None]
  - NAUSEA [None]
  - PREGNANCY TEST POSITIVE [None]
  - PREMATURE SEPARATION OF PLACENTA [None]
